FAERS Safety Report 12761369 (Version 3)
Quarter: 2022Q1

REPORT INFORMATION
  Report Type: Other
  Country: CA (occurrence: CA)
  Receive Date: 20160920
  Receipt Date: 20220124
  Transmission Date: 20220423
  Serious: Yes (Hospitalization, Other)
  Sender: FDA-Public Use
  Company Number: CA-002147023-PHHY2015CA019029

PATIENT
  Age: 55 Year
  Sex: Female

DRUGS (1)
  1. XOLAIR [Suspect]
     Active Substance: OMALIZUMAB
     Indication: Asthma
     Route: 058
     Dates: start: 20141218

REACTIONS (8)
  - Gastrooesophageal reflux disease [Unknown]
  - Condition aggravated [Unknown]
  - Forced expiratory volume decreased [Unknown]
  - Tooth infection [Unknown]
  - Spirometry abnormal [Unknown]
  - Weight decreased [Unknown]
  - Middle insomnia [Unknown]
  - Obstructive airways disorder [Unknown]

NARRATIVE: CASE EVENT DATE: 20150201
